FAERS Safety Report 6139622-9 (Version None)
Quarter: 2009Q1

REPORT INFORMATION
  Report Type: 
  Country: None (occurrence: None)
  Receive Date: 20090331
  Receipt Date: 20090331
  Transmission Date: 20090719
  Serious: Yes (Life-Threatening)
  Sender: FDA-Public Use
  Company Number: None

PATIENT
  Age: 59 Year
  Sex: Male
  Weight: 63.5036 kg

DRUGS (12)
  1. VENOFER [Suspect]
     Indication: ANAEMIA
     Dosage: 200 MG Q DAY IV
     Route: 042
     Dates: start: 20090120
  2. ZANTAC [Concomitant]
  3. ATIVAN [Concomitant]
  4. MORPHINE [Concomitant]
  5. INTRALIPIDS [Concomitant]
  6. TPN [Concomitant]
  7. LASIX [Concomitant]
  8. ADVAIR HFA [Concomitant]
  9. DUONEB [Concomitant]
  10. NEXIUM [Concomitant]
  11. TENORMIN [Concomitant]
  12. ZESTRIL [Concomitant]

REACTIONS (4)
  - INFUSION RELATED REACTION [None]
  - MALAISE [None]
  - MUSCLE RIGIDITY [None]
  - PAIN [None]
